FAERS Safety Report 23203511 (Version 2)
Quarter: 2023Q4

REPORT INFORMATION
  Report Type: Spontaneous
  Country: DE (occurrence: DE)
  Receive Date: 20231120
  Receipt Date: 20231121
  Transmission Date: 20240110
  Serious: Yes (Hospitalization, Other)
  Sender: FDA-Public Use
  Company Number: DE-drreddys-GER/GER/18/0106165

PATIENT
  Age: 68 Year
  Sex: Male

DRUGS (26)
  1. GABAPENTIN [Suspect]
     Active Substance: GABAPENTIN
     Indication: Trigeminal neuralgia
  2. GABAPENTIN [Suspect]
     Active Substance: GABAPENTIN
     Indication: Pain
     Dosage: 2400 MG/D
  3. GABAPENTIN [Suspect]
     Active Substance: GABAPENTIN
  4. ACYCLOVIR [Suspect]
     Active Substance: ACYCLOVIR
     Indication: Herpes zoster
     Route: 065
  5. ACYCLOVIR [Suspect]
     Active Substance: ACYCLOVIR
     Indication: Post herpetic neuralgia
  6. PREGABALIN [Suspect]
     Active Substance: PREGABALIN
     Indication: Herpes zoster
  7. PREGABALIN [Suspect]
     Active Substance: PREGABALIN
     Indication: Post herpetic neuralgia
  8. HYDROMORPHONE [Suspect]
     Active Substance: HYDROMORPHONE
     Indication: Trigeminal neuralgia
     Dosage: 4 MG, 2X/DAY (4 - 0 - 4 MG)
  9. HYDROMORPHONE [Suspect]
     Active Substance: HYDROMORPHONE
     Indication: Pain
  10. HYDROMORPHONE [Suspect]
     Active Substance: HYDROMORPHONE
     Indication: Post herpetic neuralgia
  11. TAPENTADOL HYDROCHLORIDE [Suspect]
     Active Substance: TAPENTADOL HYDROCHLORIDE
     Indication: Trigeminal neuralgia
     Dosage: 500 MG, 1X/DAY (150 - 150 - 200 MG)
  12. TAPENTADOL HYDROCHLORIDE [Suspect]
     Active Substance: TAPENTADOL HYDROCHLORIDE
     Indication: Post herpetic neuralgia
     Dosage: 100-100-200 MG (AFTER 8 MONTHS)
  13. OXCARBAZEPINE [Suspect]
     Active Substance: OXCARBAZEPINE
     Indication: Trigeminal neuralgia
  14. OXCARBAZEPINE [Suspect]
     Active Substance: OXCARBAZEPINE
     Indication: Post herpetic neuralgia
  15. AMITRIPTYLINE HYDROCHLORIDE [Suspect]
     Active Substance: AMITRIPTYLINE HYDROCHLORIDE
     Indication: Trigeminal neuralgia
     Dosage: AMITRIPTYLINE 10 DROPS (WEEK 8)
  16. AMITRIPTYLINE HYDROCHLORIDE [Suspect]
     Active Substance: AMITRIPTYLINE HYDROCHLORIDE
     Indication: Pain
     Dosage: 25 UNK
  17. LIDOCAINE HYDROCHLORIDE [Suspect]
     Active Substance: DEXTROSE MONOHYDRATE\EPINEPHRINE\EPINEPHRINE BITARTRATE\LIDOCAINE\LIDOCAINE HYDROCHLORIDE\LIDOCAINE
     Indication: Trigeminal neuralgia
     Route: 061
  18. LIDOCAINE HYDROCHLORIDE [Suspect]
     Active Substance: DEXTROSE MONOHYDRATE\EPINEPHRINE\EPINEPHRINE BITARTRATE\LIDOCAINE\LIDOCAINE HYDROCHLORIDE\LIDOCAINE
     Indication: Pain
  19. AMBROXOL [Suspect]
     Active Substance: AMBROXOL
     Indication: Pain
     Dosage: 20 PERCENT OINTMENT
     Route: 061
  20. AMBROXOL [Suspect]
     Active Substance: AMBROXOL
     Indication: Post herpetic neuralgia
  21. CAPSAICIN [Suspect]
     Active Substance: CAPSAICIN
     Indication: Post herpetic neuralgia
     Dosage: 8 PERCENT
     Route: 061
  22. DEXAMETHASONE [Suspect]
     Active Substance: DEXAMETHASONE
     Indication: Pain
  23. DEXKETOPROFEN [Concomitant]
     Active Substance: DEXKETOPROFEN
     Indication: Post herpetic neuralgia
     Dosage: FOR 60 MINUTES
  24. OXCARBAZEPINE [Concomitant]
     Active Substance: OXCARBAZEPINE
     Indication: Post herpetic neuralgia
     Dosage: 4X150 MG; LATER REDUCED TO 2X150 MG
  25. LIDOCAINE [Concomitant]
     Active Substance: LIDOCAINE
     Indication: Post herpetic neuralgia
  26. AMITRIPTYLINE [Concomitant]
     Active Substance: AMITRIPTYLINE
     Indication: Post herpetic neuralgia
     Dosage: 10 DROPS

REACTIONS (27)
  - Glaucoma [Unknown]
  - Atrial fibrillation [Unknown]
  - Post herpetic neuralgia [Unknown]
  - Quality of life decreased [Unknown]
  - Sleep apnoea syndrome [Recovered/Resolved]
  - Nasopharyngitis [Unknown]
  - Hyperaesthesia [Unknown]
  - Hypoaesthesia [Unknown]
  - Sleep deficit [Recovered/Resolved]
  - Benign prostatic hyperplasia [Unknown]
  - Osteoarthritis [Unknown]
  - Application site pain [Unknown]
  - Fall [Unknown]
  - Insomnia [Unknown]
  - Drug eruption [Unknown]
  - Constipation [Unknown]
  - Depression [Unknown]
  - Application site erythema [Unknown]
  - Liver function test increased [Unknown]
  - Fatigue [Unknown]
  - Blood creatinine increased [Unknown]
  - Confusional state [Unknown]
  - Off label use [Unknown]
  - Drug ineffective [Unknown]
  - Drug ineffective [Unknown]
  - Therapeutic product effect incomplete [Unknown]
  - Intentional product use issue [Unknown]
